FAERS Safety Report 9518347 (Version 1)
Quarter: 2013Q1

REPORT INFORMATION
  Report Type: Spontaneous
  Country: US (occurrence: None)
  Receive Date: 20130305
  Receipt Date: 20130305
  Transmission Date: 20140127
  Serious: Yes (Other)
  Sender: FDA-Public Use
  Company Number: 163-21880-12071084

PATIENT
  Age: 64 Year
  Sex: Male
  Weight: 82.56 kg

DRUGS (1)
  1. REVLIMID [Suspect]
     Dosage: 10 MG, 28 IN 28 D, PO
     Route: 048
     Dates: start: 20110428

REACTIONS (1)
  - Rash [None]
